FAERS Safety Report 4866058-0 (Version None)
Quarter: 2005Q4

REPORT INFORMATION
  Report Type: 
  Country: None (occurrence: None)
  Receive Date: 20051221
  Receipt Date: 20051207
  Transmission Date: 20060501
  Serious: Yes (Hospitalization)
  Sender: FDA-Public Use
  Company Number: SU-2005-004373

PATIENT

DRUGS (2)
  1. BENICAR [Suspect]
     Dosage: MG PO
     Route: 048
  2. OTHER HYPERTENSIVE AGENTS [Concomitant]

REACTIONS (1)
  - HYPOTENSION [None]
